FAERS Safety Report 8323845 (Version 2)
Quarter: 2013Q1

REPORT INFORMATION
  Report Type: Report from Study
  Country: US (occurrence: US)
  Receive Date: 20120105
  Receipt Date: 20130103
  Transmission Date: 20140127
  Serious: No
  Sender: FDA-Public Use
  Company Number: US-ABBOTT-11P-163-0733185-00

PATIENT
  Sex: Female
  Weight: 60.38 kg

DRUGS (2)
  1. SYNTHROID [Suspect]
     Indication: HYPOTHYROIDISM
     Dates: start: 201003, end: 201102
  2. TIROSINT [Suspect]
     Indication: HYPOTHYROIDISM
     Dates: start: 20110509, end: 20110523

REACTIONS (1)
  - Alopecia [Not Recovered/Not Resolved]
